FAERS Safety Report 10016073 (Version 3)
Quarter: 2014Q2

REPORT INFORMATION
  Report Type: Spontaneous
  Country: US (occurrence: US)
  Receive Date: 20140317
  Receipt Date: 20140630
  Transmission Date: 20141212
  Serious: Yes (Hospitalization, Other)
  Sender: FDA-Public Use
  Company Number: US-PFIZER INC-2014073012

PATIENT
  Age: 72 Year
  Sex: Female
  Weight: 72.56 kg

DRUGS (6)
  1. LIPITOR [Suspect]
     Indication: LOW DENSITY LIPOPROTEIN INCREASED
     Dosage: 10 MG, DAILY
     Route: 048
     Dates: start: 200003, end: 200706
  2. LIPITOR [Suspect]
     Indication: CARDIOVASCULAR EVENT PROPHYLAXIS
     Dosage: 20 MG, DAILY
     Route: 048
     Dates: start: 20100810
  3. ATORVASTATIN CALCIUM [Suspect]
     Indication: HYPERCHOLESTEROLAEMIA
     Dosage: 20 MG, DAILY
     Route: 048
     Dates: start: 20100810
  4. DYAZIDE [Concomitant]
     Indication: BLOOD PRESSURE ABNORMAL
     Dosage: 1 DF, DAILY
     Dates: start: 199901
  5. DYAZIDE [Concomitant]
     Indication: CARDIAC DISORDER
  6. CALCIUM [Concomitant]
     Indication: VITAMIN SUPPLEMENTATION
     Dosage: 1200 MG, DAILY
     Dates: start: 200401

REACTIONS (2)
  - Renal failure [Not Recovered/Not Resolved]
  - Type 2 diabetes mellitus [Not Recovered/Not Resolved]
